FAERS Safety Report 15179983 (Version 4)
Quarter: 2018Q4

REPORT INFORMATION
  Report Type: Spontaneous
  Country: US (occurrence: US)
  Receive Date: 20180723
  Receipt Date: 20181114
  Transmission Date: 20190204
  Serious: No
  Sender: FDA-Public Use
  Company Number: US-PFIZER INC-2018293229

PATIENT
  Sex: Female

DRUGS (5)
  1. IBUPROFEN. [Concomitant]
     Active Substance: IBUPROFEN
     Dosage: 1 DF, 3X/DAY (WITH FOOD PRN)
     Route: 048
     Dates: start: 20070716, end: 20070726
  2. ZOLOFT [Suspect]
     Active Substance: SERTRALINE HYDROCHLORIDE
     Indication: DEPRESSION
     Dosage: 2 DF, 1X/DAY
     Dates: start: 20040917, end: 20100512
  3. ULTRAM [Concomitant]
     Active Substance: TRAMADOL HYDROCHLORIDE
     Indication: PAIN
     Dosage: 1-2 DF, EVERY 6 HOURS, AS NEEDED
     Route: 048
     Dates: start: 20070716, end: 20070726
  4. ZITHROMAX [Concomitant]
     Active Substance: AZITHROMYCIN DIHYDRATE
     Dosage: 1 DF, 1X/DAY (FOR 5 DAYS)
     Route: 048
     Dates: start: 20080408, end: 20100512
  5. WELLBUTRIN XL [Concomitant]
     Active Substance: BUPROPION HYDROCHLORIDE
     Dosage: 1 DF, 1X/DAY
     Route: 048
     Dates: end: 20111116

REACTIONS (4)
  - Fatigue [Unknown]
  - Sleep disorder [Unknown]
  - Weight increased [Unknown]
  - Loss of libido [Unknown]
